FAERS Safety Report 13444787 (Version 1)
Quarter: 2017Q2

REPORT INFORMATION
  Report Type: Report from Study
  Country: MX (occurrence: MX)
  Receive Date: 20170414
  Receipt Date: 20170414
  Transmission Date: 20170830
  Serious: Yes (Other)
  Sender: FDA-Public Use
  Company Number: PHHY2017MX056656

PATIENT
  Sex: Female

DRUGS (1)
  1. ACLASTA [Suspect]
     Active Substance: ZOLEDRONIC ACID
     Indication: OSTEOPOROSIS
     Dosage: 5 MG, Q12MO
     Route: 065

REACTIONS (5)
  - Fall [Recovered/Resolved]
  - Scar [Recovering/Resolving]
  - Fracture [Recovered/Resolved]
  - Swelling face [Recovering/Resolving]
  - Face injury [Recovered/Resolved]
